FAERS Safety Report 7644533-3 (Version None)
Quarter: 2011Q3

REPORT INFORMATION
  Report Type: 
  Country: None (occurrence: None)
  Receive Date: 20110729
  Receipt Date: 20110728
  Transmission Date: 20111222
  Serious: Yes (Hospitalization)
  Sender: FDA-Public Use
  Company Number: FR-ABBOTT-11P-056-0838702-00

PATIENT
  Sex: Male

DRUGS (6)
  1. NORVIR [Suspect]
     Indication: HIV INFECTION
     Route: 048
     Dates: start: 20110527, end: 20110605
  2. PENTACARINAT [Concomitant]
     Indication: PROPHYLAXIS
     Dates: start: 20110520
  3. TRUVADA [Suspect]
     Indication: HIV INFECTION
     Route: 048
     Dates: start: 20110527, end: 20110605
  4. PYRIMETHAMINE TAB [Suspect]
     Indication: PROPHYLAXIS
     Route: 048
     Dates: start: 20110515, end: 20110601
  5. NORVIR [Suspect]
     Dates: start: 20110610
  6. PREZISTA [Suspect]
     Indication: HIV INFECTION
     Route: 048
     Dates: start: 20110527, end: 20110605

REACTIONS (1)
  - THROMBOCYTOPENIA [None]
